FAERS Safety Report 19584186 (Version 1)
Quarter: 2021Q3

REPORT INFORMATION
  Report Type: Spontaneous
  Country: US (occurrence: US)
  Receive Date: 20210720
  Receipt Date: 20210720
  Transmission Date: 20211014
  Serious: No
  Sender: FDA-Public Use
  Company Number: US-BEH-2021134095

PATIENT
  Age: 70 Year
  Sex: Female

DRUGS (20)
  1. AMLODIPINE BESYLATE. [Concomitant]
     Active Substance: AMLODIPINE BESYLATE
     Dosage: 2.5 MILLIGRAM
  2. PRIVIGEN [Suspect]
     Active Substance: HUMAN IMMUNOGLOBULIN G
     Indication: COUGH
     Dosage: 25 GRAM, QMT, EVERY 4 WEEKS
     Route: 042
     Dates: start: 202004
  3. SINGULAIR [Concomitant]
     Active Substance: MONTELUKAST SODIUM
  4. VITAMIN D [COLECALCIFEROL] [Concomitant]
     Active Substance: CHOLECALCIFEROL
     Dosage: 125 MICROGRAM(500
  5. MECLIZINE HYDROCHLORIDE. [Concomitant]
     Active Substance: MECLIZINE HYDROCHLORIDE
  6. MAXALT [Concomitant]
     Active Substance: RIZATRIPTAN BENZOATE
     Dosage: 10 MILLIGRAM
  7. OLOPATADINE. [Concomitant]
     Active Substance: OLOPATADINE
  8. ZEMAIRA [Suspect]
     Active Substance: .ALPHA.1-PROTEINASE INHIBITOR HUMAN
     Indication: COUGH
     Dosage: 3908 MILLIGRAM (60 MG/KG ? DOSE 977X4=3908), QW
     Route: 042
     Dates: start: 202001
  9. TIOTROPIUM BROMIDE [Concomitant]
     Active Substance: TIOTROPIUM BROMIDE
  10. ZEMAIRA [Suspect]
     Active Substance: .ALPHA.1-PROTEINASE INHIBITOR HUMAN
     Indication: COUGH
     Dosage: 3908 MILLIGRAM (60 MG/KG ? DOSE 977X4=3908), QW
     Route: 042
     Dates: start: 202001
  11. INTRAROSA [Concomitant]
     Active Substance: PRASTERONE
     Dosage: 6.5 MILLIGRAM
     Route: 067
  12. FLUTICASONE PROPIONATE;SALMETEROL [Concomitant]
     Active Substance: FLUTICASONE PROPIONATE\SALMETEROL XINAFOATE
  13. NASACORT [Concomitant]
     Active Substance: TRIAMCINOLONE ACETONIDE
     Dosage: 55 MCG/AC
  14. LEVAQUIN [Concomitant]
     Active Substance: LEVOFLOXACIN
  15. DEXILANT [Concomitant]
     Active Substance: DEXLANSOPRAZOLE
     Dosage: 60 MILLIGRAM
  16. CHOLECALCIFEROL [Concomitant]
     Active Substance: CHOLECALCIFEROL
  17. ATORVASTATIN [Concomitant]
     Active Substance: ATORVASTATIN
  18. PROPRANOLOL [Concomitant]
     Active Substance: PROPRANOLOL HYDROCHLORIDE
     Dosage: 80 MILLIGRAM
  19. CARVEDILOL. [Concomitant]
     Active Substance: CARVEDILOL
     Dosage: 12.5 MILLIGRAM
  20. LOSARTAN POTASSIUM. [Concomitant]
     Active Substance: LOSARTAN POTASSIUM
     Dosage: 50 MILLIGRAM

REACTIONS (9)
  - Laryngitis [Unknown]
  - Sinusitis [Unknown]
  - Candida infection [Unknown]
  - Ill-defined disorder [Unknown]
  - Pallor [Unknown]
  - No adverse event [Unknown]
  - Asthma [Unknown]
  - Bronchitis [Unknown]
  - Off label use [Unknown]

NARRATIVE: CASE EVENT DATE: 202103
